FAERS Safety Report 6526705-4 (Version None)
Quarter: 2010Q1

REPORT INFORMATION
  Report Type: 
  Country: None (occurrence: None)
  Receive Date: 20100104
  Receipt Date: 20100104
  Transmission Date: 20100710
  Serious: No
  Sender: FDA-Public Use
  Company Number: None

PATIENT
  Sex: Female
  Weight: 103.4201 kg

DRUGS (5)
  1. GEODON [Suspect]
     Indication: BIPOLAR DISORDER
     Dosage: 2-3 1X NITE
     Dates: start: 20091208
  2. GEODON [Suspect]
     Indication: BIPOLAR DISORDER
     Dosage: 2-3 1X NITE
     Dates: start: 20091209
  3. GEODON [Suspect]
     Indication: BIPOLAR DISORDER
     Dosage: 2-3 1X NITE
     Dates: start: 20091210
  4. GEODON [Suspect]
     Indication: BIPOLAR DISORDER
     Dosage: 2-3 1X NITE
     Dates: start: 20091211
  5. GEODON [Suspect]
     Indication: BIPOLAR DISORDER
     Dosage: 2-3 1X NITE
     Dates: start: 20091212

REACTIONS (7)
  - ABASIA [None]
  - APHASIA [None]
  - CRYING [None]
  - DYSPHONIA [None]
  - POLLAKIURIA [None]
  - RESPIRATORY RATE DECREASED [None]
  - SWELLING [None]
